FAERS Safety Report 4588560-1 (Version None)
Quarter: 2005Q1

REPORT INFORMATION
  Report Type: 
  Country: None (occurrence: None)
  Receive Date: 20050215
  Receipt Date: 20050215
  Transmission Date: 20050727
  Serious: Yes (Hospitalization)
  Sender: FDA-Public Use
  Company Number: None

PATIENT
  Sex: Female
  Weight: 69.2 kg

DRUGS (6)
  1. PACLITAXEL [Suspect]
  2. ATENOLOL [Concomitant]
  3. METFORMIN HCL [Concomitant]
  4. CENTRUM LIQUID (VITAMIN SUPPLEMENT) [Concomitant]
  5. HYDROCODONE ELIXIR [Concomitant]
  6. HEPARIN SODIUM [Concomitant]

REACTIONS (16)
  - COAGULOPATHY [None]
  - DEEP VEIN THROMBOSIS [None]
  - HEPARIN-INDUCED THROMBOCYTOPENIA [None]
  - JUGULAR VEIN THROMBOSIS [None]
  - MOANING [None]
  - MULTI-ORGAN FAILURE [None]
  - OEDEMA [None]
  - PETECHIAE [None]
  - PHLEBOTHROMBOSIS [None]
  - PROTHROMBIN TIME PROLONGED [None]
  - RENAL FAILURE [None]
  - SKIN DISCOLOURATION [None]
  - SUBCLAVIAN VEIN THROMBOSIS [None]
  - SWELLING FACE [None]
  - VENOUS OCCLUSION [None]
  - VENOUS THROMBOSIS LIMB [None]
